FAERS Safety Report 16985097 (Version 2)
Quarter: 2020Q2

REPORT INFORMATION
  Report Type: Spontaneous
  Country: PL (occurrence: PL)
  Receive Date: 20191101
  Receipt Date: 20200603
  Transmission Date: 20200713
  Serious: No
  Sender: FDA-Public Use
  Company Number: PL-TOLMAR, INC.-19PL000765

PATIENT
  Age: 83 Year
  Sex: Male

DRUGS (1)
  1. ELIGARD [Suspect]
     Active Substance: LEUPROLIDE ACETATE
     Indication: PROSTATE CANCER METASTATIC
     Dosage: 22.5 MG, Q3MONTHS
     Route: 058

REACTIONS (4)
  - Needle issue [Unknown]
  - Product administration error [Unknown]
  - Product physical consistency issue [Unknown]
  - Underdose [Unknown]
